FAERS Safety Report 8819753 (Version 1)
Quarter: 2012Q4

REPORT INFORMATION
  Report Type: 
  Country: US (occurrence: US)
  Receive Date: 20121001
  Receipt Date: 20121001
  Transmission Date: 20130627
  Serious: Yes (Other)
  Sender: FDA-Public Use
  Company Number: US-ROCHE-1130181

PATIENT
  Sex: Female

DRUGS (5)
  1. HERCEPTIN [Suspect]
     Indication: BREAST CANCER
     Route: 065
     Dates: start: 19990611
  2. AREDIA [Concomitant]
     Route: 065
  3. FASLODEX [Concomitant]
  4. XELODA [Concomitant]
     Route: 065
  5. TAXOL [Concomitant]

REACTIONS (10)
  - Pelvic pain [Unknown]
  - Depression [Unknown]
  - Back pain [Unknown]
  - Rash [Unknown]
  - Mucosal inflammation [Unknown]
  - Myalgia [Unknown]
  - Dehydration [Unknown]
  - Hallucination [Unknown]
  - Insomnia [Unknown]
  - Disease progression [Unknown]
